FAERS Safety Report 8128597-9 (Version None)
Quarter: 2012Q1

REPORT INFORMATION
  Report Type: 
  Country: None (occurrence: None)
  Receive Date: 20120210
  Receipt Date: 20111213
  Transmission Date: 20120608
  Serious: No
  Sender: FDA-Public Use
  Company Number: US-BRISTOL-MYERS SQUIBB COMPANY-16290181

PATIENT
  Age: 45 Year
  Sex: Female
  Weight: 82 kg

DRUGS (9)
  1. PLAQUENIL [Concomitant]
  2. VICOPROFEN [Concomitant]
  3. OMEPRAZOLE [Concomitant]
  4. VITAMIN B-12 [Concomitant]
  5. LEXAPRO [Concomitant]
  6. CLONIDINE [Concomitant]
  7. ABATACEPT SUBQ INJECTION 125MG/ML [Suspect]
     Indication: RHEUMATOID ARTHRITIS
     Route: 058
     Dates: start: 20111211
  8. SPIRIVA [Concomitant]
  9. IBUPROFEN [Concomitant]

REACTIONS (2)
  - INJECTION SITE REACTION [None]
  - NAUSEA [None]
